FAERS Safety Report 7545915-0 (Version None)
Quarter: 2011Q2

REPORT INFORMATION
  Report Type: 
  Country: None (occurrence: None)
  Receive Date: 20110607
  Receipt Date: 20110524
  Transmission Date: 20111010
  Serious: Yes (Other)
  Sender: FDA-Public Use
  Company Number: 2011-1714

PATIENT
  Age: 45 Year
  Sex: Female

DRUGS (3)
  1. AZZALURE (BOTULINUM TOXIN TYPE A) (BOTULINUM TOXIN TYPE A) [Suspect]
     Indication: SKIN WRINKLING
     Dosage: 125 UNITS (125 UNITS, SINGLE, CYCLE), INTRAMUSCULAR
     Route: 030
     Dates: start: 20110401, end: 20110401
  2. AZZALURE (BOTULINUM TOXIN TYPE A) (BOTULINUM TOXIN TYPE A) [Suspect]
     Indication: SKIN WRINKLING
     Dosage: 125 UNITS (125 UNITS, SINGLE, CYCLE), INTRAMUSCULAR
     Route: 030
     Dates: start: 20110401, end: 20110401
  3. PAPAYA (PAPAYA ENZYME) [Concomitant]

REACTIONS (2)
  - SYNCOPE [None]
  - DYSPHAGIA [None]
